FAERS Safety Report 25490318 (Version 1)
Quarter: 2025Q2

REPORT INFORMATION
  Report Type: Spontaneous
  Country: US (occurrence: US)
  Receive Date: 20250628
  Receipt Date: 20250628
  Transmission Date: 20250717
  Serious: No
  Sender: LUPIN
  Company Number: US-LUPIN PHARMACEUTICALS INC.-2025-05426

PATIENT

DRUGS (1)
  1. ALBUTEROL SULFATE [Suspect]
     Active Substance: ALBUTEROL SULFATE
     Indication: Chronic obstructive pulmonary disease

REACTIONS (4)
  - Chest discomfort [Unknown]
  - Drug dose omission by device [Unknown]
  - Device delivery system issue [Unknown]
  - Product identification number issue [Unknown]
